FAERS Safety Report 22003129 (Version 4)
Quarter: 2023Q1

REPORT INFORMATION
  Report Type: Report from Study
  Country: AU (occurrence: AU)
  Receive Date: 20230217
  Receipt Date: 20230312
  Transmission Date: 20230418
  Serious: Yes (Hospitalization, Other)
  Sender: FDA-Public Use
  Company Number: AU-002147023-NVSC2023AU030302

PATIENT
  Age: 62 Year
  Sex: Male

DRUGS (11)
  1. ASCIMINIB [Suspect]
     Active Substance: ASCIMINIB
     Indication: Chronic myeloid leukaemia
     Dosage: 200 MG, BID
     Route: 048
     Dates: start: 20220526
  2. ASCIMINIB [Suspect]
     Active Substance: ASCIMINIB
     Indication: Philadelphia chromosome positive
     Dosage: 160 MG, BID
     Route: 048
  3. ASCIMINIB [Suspect]
     Active Substance: ASCIMINIB
     Dosage: 150 MG, BID
     Route: 065
  4. ROSUVASTATIN [Concomitant]
     Active Substance: ROSUVASTATIN
     Indication: Lipids abnormal
     Dosage: 10 MG, QD (START DATE: YEARS)
     Route: 048
  5. IRBESARTAN [Concomitant]
     Active Substance: IRBESARTAN
     Indication: Hypertension
     Dosage: 300 MG, QD (START DATE: YEARS)
     Route: 048
  6. HYDROCHLOROTHIAZIDE [Concomitant]
     Active Substance: HYDROCHLOROTHIAZIDE
     Indication: Hypertension
     Dosage: 12.5 MG, QD (START DATE: YEARS)
     Route: 048
     Dates: end: 202212
  7. LERCANIDIPINE [Concomitant]
     Active Substance: LERCANIDIPINE
     Indication: Hypertension
     Dosage: 20 MG, QD (START DATE: YEARS)
     Route: 048
  8. ATENOLOL [Concomitant]
     Active Substance: ATENOLOL
     Indication: Hypertension
     Dosage: 50 MG, QD (START DATE: YEARS)
     Route: 048
  9. PRAZOSIN [Concomitant]
     Active Substance: PRAZOSIN
     Indication: Hypertension
     Dosage: 5 MG, QID (START DATE: YEARS)
     Route: 048
     Dates: end: 202212
  10. MOXONIDINE [Concomitant]
     Active Substance: MOXONIDINE
     Indication: Hypertension
     Dosage: 400 UG, QD (START DATE: YEARS)
     Route: 048
  11. ASPIRIN [Concomitant]
     Active Substance: ASPIRIN
     Indication: Prophylaxis
     Dosage: 100 MG, QD
     Route: 048

REACTIONS (3)
  - Pericardial effusion [Not Recovered/Not Resolved]
  - Pleural effusion [Recovering/Resolving]
  - Viral pericarditis [Unknown]

NARRATIVE: CASE EVENT DATE: 20221219
